FAERS Safety Report 14816515 (Version 1)
Quarter: 2018Q2

REPORT INFORMATION
  Report Type: Spontaneous
  Country: DE (occurrence: DE)
  Receive Date: 20180426
  Receipt Date: 20180426
  Transmission Date: 20180711
  Serious: Yes (Other)
  Sender: FDA-Public Use
  Company Number: DE-TEVA-2018-DE-849981

PATIENT
  Age: 92 Year
  Sex: Female
  Weight: 52 kg

DRUGS (2)
  1. CLOPIDOGREL HYDROGEN SULFATE [Suspect]
     Active Substance: CLOPIDOGREL BISULFATE
     Indication: ACUTE MYOCARDIAL INFARCTION
     Dosage: 75 MILLIGRAM DAILY;
     Route: 065
  2. ELIQUIS [Suspect]
     Active Substance: APIXABAN
     Indication: CEREBROVASCULAR ACCIDENT PROPHYLAXIS
     Dosage: 5 MILLIGRAM DAILY;
     Route: 048
     Dates: start: 201706, end: 201706

REACTIONS (3)
  - Haemorrhage [Unknown]
  - Spontaneous haemorrhage [Unknown]
  - Eczema [Unknown]
